FAERS Safety Report 8104447-1 (Version None)
Quarter: 2012Q1

REPORT INFORMATION
  Report Type: 
  Country: None (occurrence: None)
  Receive Date: 20120201
  Receipt Date: 20120124
  Transmission Date: 20120608
  Serious: Yes (Hospitalization, Other)
  Sender: FDA-Public Use
  Company Number: PHHY2012KW006305

PATIENT
  Age: 28 Year
  Sex: Male

DRUGS (1)
  1. DIAZEPAM [Suspect]

REACTIONS (14)
  - TACHYCARDIA [None]
  - TACHYPNOEA [None]
  - ASPIRATION [None]
  - COMA [None]
  - AGITATION [None]
  - SHOCK [None]
  - ACUTE RESPIRATORY DISTRESS SYNDROME [None]
  - LACTIC ACIDOSIS [None]
  - HYPERTENSION [None]
  - RESTLESSNESS [None]
  - HYPOXIA [None]
  - BLOOD PRESSURE DECREASED [None]
  - DELIRIUM [None]
  - RALES [None]
